FAERS Safety Report 14120339 (Version 1)
Quarter: 2017Q4

REPORT INFORMATION
  Report Type: Spontaneous
  Country: US (occurrence: US)
  Receive Date: 20171024
  Receipt Date: 20171024
  Transmission Date: 20180321
  Serious: No
  Sender: FDA-Public Use
  Company Number: US-PERRIGO-17US025564

PATIENT
  Age: 55 Year
  Sex: Female
  Weight: 92.97 kg

DRUGS (2)
  1. NICOTINE POLACRILEX [Suspect]
     Active Substance: NICOTINE
     Indication: SMOKING CESSATION THERAPY
     Dosage: 4 MG, 5 TO 7 TIMES DAILY, PRN
     Route: 002
     Dates: start: 20170720, end: 20170725
  2. VITAMIN C [Concomitant]
     Active Substance: ASCORBIC ACID
     Indication: SUPPLEMENTATION THERAPY
     Dosage: UNK
     Route: 048

REACTIONS (2)
  - Oral mucosal blistering [Recovering/Resolving]
  - Lip discolouration [Recovering/Resolving]

NARRATIVE: CASE EVENT DATE: 20170723
